FAERS Safety Report 12730193 (Version 2)
Quarter: 2016Q4

REPORT INFORMATION
  Report Type: Spontaneous
  Country: US (occurrence: US)
  Receive Date: 20160909
  Receipt Date: 20161027
  Transmission Date: 20170207
  Serious: No
  Sender: FDA-Public Use
  Company Number: US-SHIRE-US201611303

PATIENT
  Sex: Female
  Weight: 67.9 kg

DRUGS (7)
  1. ORAL CONTRACEPTIVE NOS [Concomitant]
     Active Substance: UNSPECIFIED INGREDIENT
     Indication: POLYGLANDULAR AUTOIMMUNE SYNDROME TYPE I
     Dosage: 1 TAB, 1X/DAY:QD
     Route: 048
  2. CITRACAL                           /00751520/ [Concomitant]
     Active Substance: CALCIUM CITRATE
     Indication: POLYGLANDULAR AUTOIMMUNE SYNDROME TYPE I
     Dosage: 1 TAB, 1X/DAY:QD
     Route: 065
  3. HYDROCORTISONE. [Concomitant]
     Active Substance: HYDROCORTISONE
     Indication: POLYGLANDULAR AUTOIMMUNE SYNDROME TYPE I
     Dosage: 10 MG AM/ 5 MG PM, OTHER
     Route: 065
  4. MAGNESIUM OXIDE. [Concomitant]
     Active Substance: MAGNESIUM OXIDE
     Indication: POLYGLANDULAR AUTOIMMUNE SYNDROME TYPE I
     Dosage: 400 MG, 2X/DAY:BID
     Route: 065
  5. CALCITRIOL. [Concomitant]
     Active Substance: CALCITRIOL
     Indication: POLYGLANDULAR AUTOIMMUNE SYNDROME TYPE I
     Dosage: 0.25 ?G, 1X/DAY:QD
  6. NATPARA (PARATHYROID HORMONE) [Suspect]
     Active Substance: PARATHYROID HORMONE
     Indication: POLYGLANDULAR AUTOIMMUNE SYNDROME TYPE I
     Dosage: 50 ?G, 1X/DAY:QD
     Route: 058
     Dates: start: 20160608
  7. FLORINEF ACETATE [Concomitant]
     Active Substance: FLUDROCORTISONE ACETATE
     Indication: POLYGLANDULAR AUTOIMMUNE SYNDROME TYPE I
     Dosage: 0.1 MG, 1X/DAY:QD
     Route: 065

REACTIONS (1)
  - Headache [Not Recovered/Not Resolved]

NARRATIVE: CASE EVENT DATE: 2016
